FAERS Safety Report 6013600-2 (Version None)
Quarter: 2008Q4

REPORT INFORMATION
  Report Type: 
  Country: None (occurrence: None)
  Receive Date: 20081219
  Receipt Date: 20081219
  Transmission Date: 20090506
  Serious: Yes (Hospitalization)
  Sender: FDA-Public Use
  Company Number: DE-JNJFOC-20081201070

PATIENT
  Sex: Female
  Weight: 64 kg

DRUGS (2)
  1. INVEGA [Suspect]
     Indication: ACCIDENTAL EXPOSURE
     Route: 048
  2. FLUOXETINE [Concomitant]
     Route: 048

REACTIONS (1)
  - ACCIDENTAL EXPOSURE [None]
